FAERS Safety Report 7082240-9 (Version None)
Quarter: 2010Q4

REPORT INFORMATION
  Report Type: 
  Country: None (occurrence: None)
  Receive Date: 20101104
  Receipt Date: 20101021
  Transmission Date: 20110411
  Serious: Yes (Hospitalization)
  Sender: FDA-Public Use
  Company Number: BR-ELI_LILLY_AND_COMPANY-BR200909005613

PATIENT
  Sex: Female
  Weight: 61.25 kg

DRUGS (10)
  1. PRASUGREL HYDROCHLORIDE [Suspect]
     Indication: ACUTE CORONARY SYNDROME
     Dosage: UNK, UNK
     Dates: start: 20090728
  2. FUROSEMIDE [Concomitant]
     Indication: HYPERTENSION
     Dates: start: 20070901
  3. ENALAPRIL MALEATE [Concomitant]
     Indication: HYPERTENSION
     Dosage: UNK, UNK
     Dates: start: 20070901
  4. ANCORON [Concomitant]
     Indication: HYPERTENSION
     Dosage: UNK, UNK
     Dates: start: 20070901
  5. ATORVASTATINA [Concomitant]
     Indication: HYPERTENSION
     Dates: start: 20090721
  6. ALDACTONE [Concomitant]
     Indication: HYPERTENSION
     Dates: start: 20080101
  7. SUSTRATE [Concomitant]
     Indication: HYPERTENSION
     Dates: start: 20090721
  8. METOCLOPRAMIDE HYDROCHLORDIE [Concomitant]
     Indication: DYSPNOEA
     Dates: start: 20090809
  9. OMEPRAZOLE [Concomitant]
     Indication: PROPHYLAXIS
     Dates: start: 20070925, end: 20091001
  10. ESPIRONOLACTONA [Concomitant]
     Indication: CARDIAC FAILURE CHRONIC
     Dates: start: 20080326, end: 20091001

REACTIONS (3)
  - HYPONATRAEMIA [None]
  - PULMONARY EMBOLISM [None]
  - URINARY TRACT INFECTION [None]
